FAERS Safety Report 4318372-5 (Version None)
Quarter: 2004Q1

REPORT INFORMATION
  Report Type: 
  Country: None (occurrence: None)
  Receive Date: 20040315
  Receipt Date: 20040309
  Transmission Date: 20041129
  Serious: Yes (Death)
  Sender: FDA-Public Use
  Company Number: 7581

PATIENT
  Age: 73 Year
  Sex: Female

DRUGS (4)
  1. METHOTREXATE [Suspect]
     Indication: RHEUMATOID ARTHRITIS
     Dosage: 15 MG WEEKLY
  2. PREDNISOLONE [Suspect]
     Indication: RHEUMATOID ARTHRITIS
     Dosage: 5 MG
  3. DISODIUM ETIDRONATE/CALCIUM CARBONATE [Suspect]
     Dosage: 1 TABLET(S)
  4. METOLAZONE [Suspect]
     Dosage: 5 MG/2 WK

REACTIONS (14)
  - ASTHENIA [None]
  - BUNDLE BRANCH BLOCK RIGHT [None]
  - ESCHERICHIA URINARY TRACT INFECTION [None]
  - LUNG CONSOLIDATION [None]
  - MEAN CELL VOLUME INCREASED [None]
  - MOBILITY DECREASED [None]
  - NAUSEA [None]
  - NOSOCOMIAL INFECTION [None]
  - PNEUMOCYSTIS CARINII PNEUMONIA [None]
  - PNEUMONITIS [None]
  - TACHYCARDIA [None]
  - TACHYPNOEA [None]
  - URINARY TRACT INFECTION [None]
  - WEIGHT DECREASED [None]
